FAERS Safety Report 15892483 (Version 1)
Quarter: 2019Q1

REPORT INFORMATION
  Report Type: Report from Study
  Country: US (occurrence: US)
  Receive Date: 20190130
  Receipt Date: 20190130
  Transmission Date: 20190417
  Serious: No
  Sender: FDA-Public Use
  Company Number: US-EXELIXIS-CABO-18014633

PATIENT
  Sex: Male

DRUGS (1)
  1. CABOMETYX [Suspect]
     Active Substance: CABOZANTINIB S-MALATE
     Indication: PRODUCT USED FOR UNKNOWN INDICATION
     Dosage: 60 MG, QD
     Route: 048

REACTIONS (5)
  - Stomatitis [Recovering/Resolving]
  - Hypothyroidism [Recovering/Resolving]
  - Proteinuria [Recovering/Resolving]
  - Liver function test abnormal [Recovering/Resolving]
  - Nausea [Recovering/Resolving]
